FAERS Safety Report 7788691-9 (Version None)
Quarter: 2011Q3

REPORT INFORMATION
  Report Type: 
  Country: None (occurrence: None)
  Receive Date: 20110930
  Receipt Date: 20110224
  Transmission Date: 20111222
  Serious: No
  Sender: FDA-Public Use
  Company Number: US-VIIV HEALTHCARE LIMITED-A0915283A

PATIENT
  Age: 63 Year
  Sex: Female

DRUGS (5)
  1. EPZICOM [Suspect]
     Indication: HIV INFECTION
     Dosage: 1TAB AT NIGHT
     Route: 048
     Dates: start: 20090101
  2. AMLODIPINE [Concomitant]
  3. ISENTRESS [Suspect]
     Dosage: 200MG TWICE PER DAY
     Dates: start: 20101001
  4. KLONOPIN [Concomitant]
  5. LEVETIRACETAM [Concomitant]

REACTIONS (3)
  - WEIGHT INCREASED [None]
  - IMMUNE SYSTEM DISORDER [None]
  - NASOPHARYNGITIS [None]
